FAERS Safety Report 10174850 (Version 2)
Quarter: 2014Q2

REPORT INFORMATION
  Report Type: Spontaneous
  Country: US (occurrence: US)
  Receive Date: 20140515
  Receipt Date: 20140606
  Transmission Date: 20141212
  Serious: Yes (Hospitalization, Other)
  Sender: FDA-Public Use
  Company Number: US-BAYER-2014-070433

PATIENT
  Age: 62 Year
  Sex: Male

DRUGS (5)
  1. STIVARGA [Suspect]
     Indication: GASTROINTESTINAL STROMAL TUMOUR
     Dosage: DAILY DOSE 120 MG
     Route: 048
     Dates: start: 20131128, end: 20131205
  2. STIVARGA [Suspect]
     Indication: GASTROINTESTINAL STROMAL TUMOUR
     Dosage: DAILY DOSE 80 MG
     Route: 048
     Dates: start: 20131207, end: 20140103
  3. STIVARGA [Suspect]
     Indication: GASTROINTESTINAL STROMAL TUMOUR
     Dosage: DAILY DOSE 40 MG
     Route: 048
     Dates: start: 20140110, end: 20140116
  4. STIVARGA [Suspect]
     Indication: GASTROINTESTINAL STROMAL TUMOUR
     Dosage: DAILY DOSE 40 MG
     Route: 048
     Dates: start: 20140404
  5. STIVARGA [Suspect]
     Indication: GASTROINTESTINAL STROMAL TUMOUR
     Dosage: DAILY DOSE 80 MG
     Dates: start: 20140412

REACTIONS (19)
  - Hepatic embolisation [None]
  - Metastases to liver [None]
  - Cholecystitis [None]
  - Palmar-plantar erythrodysaesthesia syndrome [None]
  - Headache [None]
  - Muscle spasms [None]
  - Dysphonia [None]
  - Fatigue [None]
  - Pain [None]
  - Malaise [None]
  - Asthenia [None]
  - Back pain [None]
  - Neck pain [None]
  - Hepatic cyst [None]
  - Biliary cyst [None]
  - Hypertension [Not Recovered/Not Resolved]
  - Nausea [None]
  - Change of bowel habit [None]
  - Liver abscess [None]
